FAERS Safety Report 9976022 (Version 3)
Quarter: 2014Q1

REPORT INFORMATION
  Report Type: Spontaneous
  Country: JP (occurrence: JP)
  Receive Date: 20140306
  Receipt Date: 20140312
  Transmission Date: 20141002
  Serious: No
  Sender: FDA-Public Use
  Company Number: JP-JNJFOC-20140300671

PATIENT
  Age: 4 Decade
  Sex: Male

DRUGS (3)
  1. SOVRIAD [Suspect]
     Indication: CHRONIC HEPATITIS C
     Route: 048
  2. PEGASYS [Suspect]
     Indication: CHRONIC HEPATITIS C
     Route: 058
  3. COPEGUS [Concomitant]
     Indication: CHRONIC HEPATITIS C
     Route: 048

REACTIONS (1)
  - Pain in extremity [Unknown]
